FAERS Safety Report 14783513 (Version 2)
Quarter: 2018Q2

REPORT INFORMATION
  Report Type: Spontaneous
  Country: IN (occurrence: IN)
  Receive Date: 20180420
  Receipt Date: 20180427
  Transmission Date: 20180711
  Serious: Yes (Life-Threatening, Hospitalization)
  Sender: FDA-Public Use
  Company Number: IN-PFIZER INC-2018160789

PATIENT
  Age: 19 Year
  Sex: Male

DRUGS (2)
  1. ATENOLOL. [Suspect]
     Active Substance: ATENOLOL
     Dosage: INGESTED 30 TABLETS OF ATENOLOL 25 MG (750 MG)
     Route: 048
  2. AMLODIPINE BESILATE [Suspect]
     Active Substance: AMLODIPINE BESYLATE
     Dosage: INGESTED 30 TABLETS OF AMLODIPINE 5 MG (150 MG)
     Route: 048

REACTIONS (3)
  - Overdose [Unknown]
  - Metabolic acidosis [Unknown]
  - Shock [Unknown]
